FAERS Safety Report 16123990 (Version 1)
Quarter: 2019Q1

REPORT INFORMATION
  Report Type: Spontaneous
  Country: US (occurrence: US)
  Receive Date: 20190327
  Receipt Date: 20190327
  Transmission Date: 20190418
  Serious: Yes (Hospitalization)
  Sender: FDA-Public Use
  Company Number: US-AMREGENT-20190534

PATIENT
  Age: 45 Year
  Sex: Female

DRUGS (1)
  1. INJECTAFER [Suspect]
     Active Substance: FERRIC CARBOXYMALTOSE
     Dosage: 750 MG
     Route: 042
     Dates: start: 20190314, end: 20190314

REACTIONS (4)
  - Nausea [Unknown]
  - Thrombosis [Unknown]
  - Abdominal pain upper [Unknown]
  - Pallor [Unknown]

NARRATIVE: CASE EVENT DATE: 20190318
